FAERS Safety Report 8183725-4 (Version None)
Quarter: 2012Q1

REPORT INFORMATION
  Report Type: 
  Country: None (occurrence: None)
  Receive Date: 20120305
  Receipt Date: 20120301
  Transmission Date: 20120608
  Serious: Yes (Hospitalization, Other)
  Sender: FDA-Public Use
  Company Number: IT-BAYER-2012-020917

PATIENT
  Age: 55 Year
  Sex: Female

DRUGS (10)
  1. ASPIRIN [Suspect]
     Dosage: 100 MG, QD
     Route: 048
     Dates: start: 20120220, end: 20120222
  2. ATORVASTATIN CALCIUM [Concomitant]
  3. PLAVIX [Suspect]
     Dosage: DAILY DOSE 600 MG
     Route: 048
     Dates: start: 20120220, end: 20120222
  4. HEPARIN [Suspect]
  5. ISOSORBIDE DINITRATE [Concomitant]
  6. ACETAMINOPHEN [Concomitant]
     Dosage: UNK
     Route: 048
  7. PANTOPRAZOLE SODIUM [Concomitant]
  8. BRILINTA [Suspect]
     Dosage: DAILY DOSE 180 MG
     Route: 048
     Dates: start: 20120221, end: 20120222
  9. ENALAPRIL MALEATE [Concomitant]
  10. TAPAZOLE [Concomitant]

REACTIONS (4)
  - PHOTOPHOBIA [None]
  - VISUAL IMPAIRMENT [None]
  - HEADACHE [None]
  - CEREBRAL HAEMORRHAGE [None]
